FAERS Safety Report 9531916 (Version 2)
Quarter: 2014Q1

REPORT INFORMATION
  Report Type: Spontaneous
  Country: US (occurrence: US)
  Receive Date: 20130918
  Receipt Date: 20140310
  Transmission Date: 20141002
  Serious: Yes (Other)
  Sender: FDA-Public Use
  Company Number: US-BAYER-2013-112523

PATIENT
  Age: 25 Year
  Sex: Female
  Weight: 63 kg

DRUGS (3)
  1. MIRENA [Suspect]
     Indication: CONTRACEPTION
     Dosage: 20 MCG/24HR, CONT
     Route: 015
     Dates: start: 20130805, end: 20130911
  2. MOTRIN [Concomitant]
     Dosage: 800 MG
     Dates: start: 20130805
  3. LORTAB [Concomitant]
     Dosage: 5 MG

REACTIONS (1)
  - Embedded device [Recovered/Resolved]
